FAERS Safety Report 21743956 (Version 27)
Quarter: 2024Q1

REPORT INFORMATION
  Report Type: Report from Study
  Country: CO (occurrence: CO)
  Receive Date: 20221217
  Receipt Date: 20240327
  Transmission Date: 20240410
  Serious: Yes (Hospitalization, Other)
  Sender: FDA-Public Use
  Company Number: CO-TAKEDA-2022TUS097622

PATIENT
  Age: 1 Year
  Sex: Female
  Weight: 8 kg

DRUGS (12)
  1. TEDUGLUTIDE [Suspect]
     Active Substance: TEDUGLUTIDE
     Indication: Short-bowel syndrome
     Dosage: 0.45 MILLIGRAM, QD
     Route: 058
     Dates: start: 20221115
  2. TEDUGLUTIDE [Suspect]
     Active Substance: TEDUGLUTIDE
     Indication: Short-bowel syndrome
     Dosage: 0.45 MILLIGRAM, QD
     Route: 058
     Dates: start: 20221115
  3. TEDUGLUTIDE [Suspect]
     Active Substance: TEDUGLUTIDE
     Indication: Short-bowel syndrome
     Dosage: 0.45 MILLIGRAM, QD
     Route: 058
     Dates: start: 20221115
  4. TEDUGLUTIDE [Suspect]
     Active Substance: TEDUGLUTIDE
     Indication: Short-bowel syndrome
     Dosage: 0.45 MILLIGRAM, QD
     Route: 058
     Dates: start: 20221115
  5. TEDUGLUTIDE [Suspect]
     Active Substance: TEDUGLUTIDE
     Dosage: 0.6 MILLIGRAM, QD
     Route: 058
  6. TEDUGLUTIDE [Suspect]
     Active Substance: TEDUGLUTIDE
     Dosage: 0.6 MILLIGRAM, QD
     Route: 058
  7. TEDUGLUTIDE [Suspect]
     Active Substance: TEDUGLUTIDE
     Dosage: 0.6 MILLIGRAM, QD
     Route: 058
  8. TEDUGLUTIDE [Suspect]
     Active Substance: TEDUGLUTIDE
     Dosage: 0.6 MILLIGRAM, QD
     Route: 058
  9. TEDUGLUTIDE [Suspect]
     Active Substance: TEDUGLUTIDE
     Dosage: 0.6 MILLIGRAM, QD
     Route: 058
  10. TEDUGLUTIDE [Suspect]
     Active Substance: TEDUGLUTIDE
     Dosage: 0.6 MILLIGRAM, QD
     Route: 058
  11. TEDUGLUTIDE [Suspect]
     Active Substance: TEDUGLUTIDE
     Dosage: 0.6 MILLIGRAM, QD
     Route: 058
  12. TEDUGLUTIDE [Suspect]
     Active Substance: TEDUGLUTIDE
     Dosage: 0.6 MILLIGRAM, QD
     Route: 058

REACTIONS (25)
  - COVID-19 [Recovering/Resolving]
  - Bacterial infection [Recovering/Resolving]
  - Use of accessory respiratory muscles [Recovering/Resolving]
  - Oxygen saturation decreased [Recovering/Resolving]
  - Pyrexia [Not Recovered/Not Resolved]
  - Cyanosis [Recovering/Resolving]
  - Seizure [Recovering/Resolving]
  - Hypotension [Recovering/Resolving]
  - Vascular device infection [Not Recovered/Not Resolved]
  - Catheter site erythema [Not Recovered/Not Resolved]
  - Influenza [Recovering/Resolving]
  - Weight increased [Unknown]
  - Body height increased [Unknown]
  - Urinary tract infection [Recovering/Resolving]
  - Diarrhoea [Recovering/Resolving]
  - Hypoacusis [Unknown]
  - Product physical consistency issue [Unknown]
  - Vomiting [Unknown]
  - Decreased appetite [Unknown]
  - Wrong dose [Unknown]
  - Product availability issue [Unknown]
  - Incorrect dose administered [Unknown]
  - Product storage error [Unknown]
  - Inappropriate schedule of product administration [Unknown]
  - Product prescribing issue [Unknown]

NARRATIVE: CASE EVENT DATE: 20221213
